FAERS Safety Report 21920369 (Version 1)
Quarter: 2023Q1

REPORT INFORMATION
  Report Type: Spontaneous
  Country: IT (occurrence: None)
  Receive Date: 20230127
  Receipt Date: 20230127
  Transmission Date: 20230418
  Serious: Yes (Hospitalization)
  Sender: FDA-Public Use
  Company Number: 2023A016326

PATIENT
  Age: 59 Year
  Sex: Male

DRUGS (8)
  1. TICAGRELOR [Suspect]
     Active Substance: TICAGRELOR
     Indication: Thrombosis prophylaxis
     Route: 048
     Dates: start: 20221011, end: 20230111
  2. ASPIRIN [Suspect]
     Active Substance: ASPIRIN
     Indication: Atherosclerosis prophylaxis
     Dosage: 100.0MG UNKNOWN
     Route: 048
  3. OMEPRAZOLE [Concomitant]
     Active Substance: OMEPRAZOLE
  4. SPIRIVA RESPIMAT [Concomitant]
     Active Substance: TIOTROPIUM BROMIDE
  5. BISOPROLOL [Concomitant]
     Active Substance: BISOPROLOL
  6. ZETIA [Concomitant]
     Active Substance: EZETIMIBE
     Route: 048
  7. DUOTENS [Concomitant]
     Route: 048
  8. ATORVASTATIN [Concomitant]
     Active Substance: ATORVASTATIN
     Route: 048

REACTIONS (2)
  - Headache [Recovering/Resolving]
  - Ear haemorrhage [Recovering/Resolving]

NARRATIVE: CASE EVENT DATE: 20230111
